FAERS Safety Report 10082854 (Version 3)
Quarter: 2014Q2

REPORT INFORMATION
  Report Type: Spontaneous
  Country: PT (occurrence: PT)
  Receive Date: 20140416
  Receipt Date: 20140527
  Transmission Date: 20141212
  Serious: No
  Sender: FDA-Public Use
  Company Number: PHHY2014PT046710

PATIENT
  Age: 19 Year
  Sex: Male

DRUGS (3)
  1. TEGRETOL [Suspect]
     Indication: EPILEPSY
     Dosage: UNK UKN, UNK (AT SHOOL)
     Route: 048
  2. TEGRETOL [Suspect]
     Dosage: UNK UKN, BID (AT HOME AND WEEKENDS)
     Route: 048
  3. RISPERIDONE [Concomitant]
     Dosage: UNK UKN, UNK

REACTIONS (3)
  - Pyrexia [Unknown]
  - Product physical consistency issue [Unknown]
  - Epilepsy [Recovered/Resolved]
